FAERS Safety Report 5706652-8 (Version None)
Quarter: 2008Q2

REPORT INFORMATION
  Report Type: 
  Country: None (occurrence: None)
  Receive Date: 20080416
  Receipt Date: 20080404
  Transmission Date: 20081010
  Serious: Yes (Other)
  Sender: FDA-Public Use
  Company Number: US-RANBAXY-2008RR-14343

PATIENT

DRUGS (2)
  1. TERBINAFINE HCL [Suspect]
     Indication: TRICHOPHYTIC GRANULOMA
     Dosage: 250 MG, QD
  2. MICONAZOLE [Concomitant]
     Indication: TRICHOPHYTIC GRANULOMA
     Route: 061

REACTIONS (1)
  - CUTANEOUS LUPUS ERYTHEMATOSUS [None]
